FAERS Safety Report 7717389-8 (Version None)
Quarter: 2011Q3

REPORT INFORMATION
  Report Type: 
  Country: None (occurrence: None)
  Receive Date: 20110830
  Receipt Date: 20110816
  Transmission Date: 20111222
  Serious: Yes (Other)
  Sender: FDA-Public Use
  Company Number: US-CELGENEUS-163-21880-11081971

PATIENT
  Sex: Male

DRUGS (12)
  1. ASPIRIN [Concomitant]
     Route: 065
  2. OXYCODONE HCL [Concomitant]
     Route: 065
  3. DILTIAZEM [Concomitant]
     Route: 065
  4. DEXAMETHASONE [Concomitant]
     Route: 065
  5. CIPROFLOXACIN [Concomitant]
     Route: 065
  6. REVLIMID [Suspect]
     Dosage: 5 MILLIGRAM
     Route: 048
     Dates: start: 20081101
  7. GABAPENTIN [Concomitant]
     Route: 065
  8. REVLIMID [Suspect]
     Indication: MULTIPLE MYELOMA
     Dosage: 15 MILLIGRAM
     Route: 048
     Dates: start: 20080801
  9. ACYCLOVIR [Concomitant]
     Route: 065
  10. FOLAST [Concomitant]
     Route: 065
  11. PANTOPRAZOLE [Concomitant]
     Route: 065
  12. TYLENOL-500 [Concomitant]
     Route: 065

REACTIONS (3)
  - DYSPNOEA [None]
  - CYST [None]
  - THROMBOSIS [None]
